FAERS Safety Report 6665288-5 (Version None)
Quarter: 2010Q2

REPORT INFORMATION
  Report Type: 
  Country: None (occurrence: None)
  Receive Date: 20100402
  Receipt Date: 20100326
  Transmission Date: 20101027
  Serious: Yes (Hospitalization)
  Sender: FDA-Public Use
  Company Number: FR-SANOFI-AVENTIS-2010SA005382

PATIENT
  Age: 56 Year
  Sex: Male
  Weight: 83 kg

DRUGS (9)
  1. BLINDED THERAPY [Suspect]
     Route: 042
     Dates: start: 20091001, end: 20091001
  2. BLINDED THERAPY [Suspect]
     Route: 042
     Dates: start: 20100112, end: 20100112
  3. DOCETAXEL [Suspect]
     Route: 042
     Dates: start: 20091001, end: 20091001
  4. DOCETAXEL [Suspect]
     Route: 042
     Dates: start: 20100112, end: 20100112
  5. PREDNISONE TAB [Suspect]
     Route: 048
     Dates: start: 20091001, end: 20100127
  6. PREDNISOLONE [Suspect]
     Route: 048
     Dates: end: 20091223
  7. LEUPROLIDE ACETATE [Concomitant]
     Indication: HORMONE THERAPY
     Dates: start: 20080328
  8. ZOLOFT [Concomitant]
  9. TRANXENE [Concomitant]

REACTIONS (1)
  - RECTAL ULCER [None]
